FAERS Safety Report 9420641 (Version 1)
Quarter: 2013Q3

REPORT INFORMATION
  Report Type: Spontaneous
  Country: US (occurrence: US)
  Receive Date: 20130725
  Receipt Date: 20130725
  Transmission Date: 20140515
  Serious: No
  Sender: FDA-Public Use
  Company Number: US-ABBOTT-13P-163-1092673-00

PATIENT
  Sex: Female
  Weight: 82.17 kg

DRUGS (2)
  1. SYNTHROID [Suspect]
     Indication: HYPOTHYROIDISM
     Dates: start: 201305
  2. CYTOMEL [Concomitant]
     Indication: PRODUCT USED FOR UNKNOWN INDICATION

REACTIONS (5)
  - Drug ineffective [Unknown]
  - Alopecia [Recovering/Resolving]
  - Insomnia [Recovering/Resolving]
  - Weight increased [Recovering/Resolving]
  - Asthenia [Recovering/Resolving]
